FAERS Safety Report 16142300 (Version 2)
Quarter: 2019Q2

REPORT INFORMATION
  Report Type: Spontaneous
  Country: US (occurrence: US)
  Receive Date: 20190401
  Receipt Date: 20190405
  Transmission Date: 20190711
  Serious: No
  Sender: FDA-Public Use
  Company Number: US-SA-2019SA088348

PATIENT
  Age: 87 Year
  Sex: Male

DRUGS (1)
  1. LANTUS [Suspect]
     Active Substance: INSULIN GLARGINE
     Dosage: 30 U, BID
     Route: 065

REACTIONS (5)
  - Hyperglycaemia [Unknown]
  - Hypoglycaemia [Unknown]
  - Product dose omission [Unknown]
  - Device operational issue [Unknown]
  - Visual impairment [Unknown]
